FAERS Safety Report 5044774-8 (Version None)
Quarter: 2006Q3

REPORT INFORMATION
  Report Type: 
  Country: None (occurrence: None)
  Receive Date: 20060707
  Receipt Date: 20060626
  Transmission Date: 20061208
  Serious: Yes (Hospitalization, Other)
  Sender: FDA-Public Use
  Company Number: US-JNJFOC-20040908135

PATIENT
  Sex: Male
  Weight: 115.67 kg

DRUGS (7)
  1. RISPERDAL [Suspect]
     Route: 048
  2. RISPERDAL [Suspect]
     Indication: MENTAL DISORDER
     Route: 048
  3. CLONIDINE [Concomitant]
     Indication: HYPERTENSION
     Route: 065
  4. DILTIAZEM HCL [Concomitant]
     Indication: HYPERTENSION
     Route: 065
  5. AMARYL [Concomitant]
     Indication: DIABETES MELLITUS
     Route: 065
  6. ZYRTEC [Concomitant]
     Indication: RHINITIS ALLERGIC
     Dosage: AS NEEDED
     Route: 065
  7. ALLEGRA [Concomitant]
     Indication: RHINITIS ALLERGIC
     Route: 065

REACTIONS (11)
  - CONJUNCTIVITIS [None]
  - COUGH [None]
  - DIABETES MELLITUS [None]
  - GASTRIC DISORDER [None]
  - GASTROINTESTINAL DISORDER [None]
  - NEPHROLITHIASIS [None]
  - PAIN [None]
  - PANCREATITIS [None]
  - PHARYNGITIS [None]
  - SINUS TACHYCARDIA [None]
  - URINARY TRACT INFECTION [None]
